FAERS Safety Report 4959275-2 (Version None)
Quarter: 2006Q1

REPORT INFORMATION
  Report Type: 
  Country: None (occurrence: None)
  Receive Date: 20060130
  Receipt Date: 20050803
  Transmission Date: 20060701
  Serious: Yes (Other)
  Sender: FDA-Public Use
  Company Number: 142877USA

PATIENT
  Sex: Female

DRUGS (2)
  1. COPAXONE [Suspect]
     Indication: MULTIPLE SCLEROSIS
     Dates: end: 20031101
  2. LEXAPRO [Concomitant]

REACTIONS (5)
  - CHEST DISCOMFORT [None]
  - CYANOSIS [None]
  - FATIGUE [None]
  - SPEECH DISORDER [None]
  - THROAT TIGHTNESS [None]
